FAERS Safety Report 9646444 (Version 1)
Quarter: 2013Q4

REPORT INFORMATION
  Report Type: Spontaneous
  Country: US (occurrence: US)
  Receive Date: 20131025
  Receipt Date: 20131025
  Transmission Date: 20140711
  Serious: Yes (Hospitalization, Other)
  Sender: FDA-Public Use
  Company Number: US-ASTRAZENECA-2013SE77373

PATIENT
  Age: 68 Year
  Sex: Female

DRUGS (6)
  1. NEXIUM [Suspect]
     Indication: GASTROOESOPHAGEAL REFLUX DISEASE
     Route: 048
     Dates: start: 2002
  2. ASPIRIN [Concomitant]
  3. ARTHROTEC [Concomitant]
  4. FOSAMAX [Concomitant]
  5. FOLIC ACID [Concomitant]
  6. FERREX [Concomitant]

REACTIONS (9)
  - Gastrointestinal stenosis [Unknown]
  - Duodenal ulcer [Unknown]
  - Haemolytic anaemia [Unknown]
  - Arthritis [Unknown]
  - Weight decreased [Unknown]
  - Haemorrhage [Unknown]
  - Haematochezia [Unknown]
  - Impaired gastric emptying [Unknown]
  - Off label use [Unknown]
